FAERS Safety Report 8618506-8 (Version None)
Quarter: 2012Q3

REPORT INFORMATION
  Report Type: 
  Country: None (occurrence: None)
  Receive Date: 20120824
  Receipt Date: 20120813
  Transmission Date: 20120928
  Serious: Yes (Congenital Anomaly, Other)
  Sender: FDA-Public Use
  Company Number: US-ACCORD-014465

PATIENT
  Weight: 2.41 kg

DRUGS (4)
  1. DOCETAXEL [Suspect]
     Indication: BREAST CANCER STAGE III
     Route: 064
  2. CYTOXAN [Suspect]
     Indication: BREAST CANCER STAGE III
     Route: 064
  3. ADRIAMYCIN PFS [Suspect]
     Indication: BREAST CANCER STAGE III
     Route: 064
  4. PACLITAXEL [Suspect]
     Indication: BREAST CANCER STAGE III
     Route: 064

REACTIONS (2)
  - NEUTROPENIA NEONATAL [None]
  - PYLORIC STENOSIS [None]
